FAERS Safety Report 22080479 (Version 1)
Quarter: 2023Q1

REPORT INFORMATION
  Report Type: Spontaneous
  Country: DE (occurrence: DE)
  Receive Date: 20230309
  Receipt Date: 20230309
  Transmission Date: 20230418
  Serious: Yes (Hospitalization, Other)
  Sender: FDA-Public Use
  Company Number: DE-002147023-NVSC2023DE054852

PATIENT
  Sex: Male

DRUGS (7)
  1. HYRIMOZ [Suspect]
     Active Substance: ADALIMUMAB-ADAZ
     Indication: Psoriasis
     Dosage: 40 MG (0.8 ML), Q2W (1-0-0-0 EVERY 14 DAYS)
     Route: 058
     Dates: start: 20190114, end: 20221106
  2. HYRIMOZ [Suspect]
     Active Substance: ADALIMUMAB-ADAZ
     Indication: Psoriatic arthropathy
     Dosage: 40 MG (0.8 ML), Q2W (1-0-0-0 EVERY 14 DAYS)
     Route: 058
     Dates: start: 20221206
  3. CANDESARTAN CILEXETIL [Concomitant]
     Active Substance: CANDESARTAN CILEXETIL
     Indication: Product used for unknown indication
     Dosage: 8 MG (FREQUENCY: 1-0-0-0)
     Route: 065
  4. IBUPROFEN [Concomitant]
     Active Substance: IBUPROFEN
     Indication: Product used for unknown indication
     Dosage: 600 MG, PRN
     Route: 065
  5. IBUPROFEN [Concomitant]
     Active Substance: IBUPROFEN
     Dosage: 600 MG, BID (FREQUENCY: 1-0-1-0)
     Route: 065
  6. NALOXONE HYDROCHLORIDE\TILIDINE HYDROCHLORIDE [Concomitant]
     Active Substance: NALOXONE HYDROCHLORIDE\TILIDINE HYDROCHLORIDE
     Indication: Product used for unknown indication
     Dosage: 1 DOSAGE FORM, PRN (SUSTAINED-RELEASE TABLET)
     Route: 065
  7. METAMIZOLE [Concomitant]
     Active Substance: METAMIZOLE
     Indication: Product used for unknown indication
     Dosage: 500 MG (FREQUENCY: 2-2-2-2)
     Route: 065

REACTIONS (7)
  - Rotator cuff syndrome [Unknown]
  - Tendon rupture [Unknown]
  - Exostosis [Unknown]
  - Osteoarthritis [Unknown]
  - Obesity [Unknown]
  - Hypertension [Unknown]
  - Hypersensitivity [Unknown]

NARRATIVE: CASE EVENT DATE: 20221124
